FAERS Safety Report 18390220 (Version 1)
Quarter: 2020Q4

REPORT INFORMATION
  Report Type: Spontaneous
  Country: GB (occurrence: GB)
  Receive Date: 20201015
  Receipt Date: 20201015
  Transmission Date: 20210114
  Serious: Yes (Other)
  Sender: FDA-Public Use
  Company Number: GB-PFIZER INC-2020394157

PATIENT
  Age: 61 Year
  Sex: Male

DRUGS (2)
  1. AMLODIPINE BESILATE [Suspect]
     Active Substance: AMLODIPINE BESYLATE
     Dosage: 10 MG, 1X/DAY
  2. RAMIPRIL. [Suspect]
     Active Substance: RAMIPRIL
     Dosage: 10 MG, 1X/DAY

REACTIONS (5)
  - Blood prolactin increased [Unknown]
  - Sex hormone binding globulin increased [Unknown]
  - Insulin-like growth factor increased [Recovering/Resolving]
  - Neuroendocrine tumour [Unknown]
  - 5-hydroxyindolacetic acid in urine increased [Unknown]

NARRATIVE: CASE EVENT DATE: 2016
